FAERS Safety Report 4569104-7 (Version None)
Quarter: 2005Q1

REPORT INFORMATION
  Report Type: 
  Country: None (occurrence: None)
  Receive Date: 20050201
  Receipt Date: 20050124
  Transmission Date: 20050727
  Serious: Yes (Life-Threatening, Hospitalization)
  Sender: FDA-Public Use
  Company Number: 2004UW24585

PATIENT
  Age: 51 Year
  Sex: Female
  Weight: 58.9676 kg

DRUGS (4)
  1. SEROQUEL [Suspect]
     Indication: AFFECTIVE DISORDER
     Dosage: 600 MG HS PO
     Route: 048
     Dates: start: 20041028, end: 20041115
  2. SEROQUEL [Suspect]
     Indication: INSOMNIA
     Dosage: 600 MG HS PO
     Route: 048
     Dates: start: 20041028, end: 20041115
  3. PARNATE [Suspect]
     Indication: DEPRESSION
     Dosage: 20 MG TID PO
     Route: 048
     Dates: end: 20041115
  4. MORPHINE [Concomitant]

REACTIONS (7)
  - COMA [None]
  - DEPRESSION [None]
  - MYOGLOBINURIA [None]
  - NEUROLEPTIC MALIGNANT SYNDROME [None]
  - OVERDOSE [None]
  - RENAL FAILURE [None]
  - RESPIRATORY FAILURE [None]
